FAERS Safety Report 9067547 (Version 3)
Quarter: 2013Q3

REPORT INFORMATION
  Report Type: Spontaneous
  Country: AU (occurrence: AU)
  Receive Date: 20130214
  Receipt Date: 20130701
  Transmission Date: 20140515
  Serious: Yes (Death, Life-Threatening, Hospitalization, Other)
  Sender: FDA-Public Use
  Company Number: AU-B.I. PHARMACEUTICALS,INC./RIDGEFIELD-2013-AU-00134AU

PATIENT
  Age: 91 Year
  Sex: Female
  Weight: 49 kg

DRUGS (13)
  1. PRADAXA [Suspect]
     Indication: CEREBROVASCULAR ACCIDENT PROPHYLAXIS
     Dosage: 220 MG
     Dates: start: 20110704, end: 20121209
  2. PRADAXA [Suspect]
     Indication: ATRIAL FIBRILLATION
  3. ASTRIX [Suspect]
     Indication: MYOCARDIAL ISCHAEMIA
     Dosage: 100 MG
  4. CLOPIDOGREL [Suspect]
  5. PERINDOPRIL [Concomitant]
     Dosage: 8 MG
  6. ATENOLOL [Concomitant]
     Dosage: 12.5 MG
  7. AMLODIPINE [Concomitant]
     Dosage: 10 MG
  8. VYTORIN [Concomitant]
     Dosage: 10/80
  9. PANADOL OSTEO [Concomitant]
  10. VIT D [+B12] [Concomitant]
  11. VIT [D +]B12 [Concomitant]
  12. FRUSEMIDE [Concomitant]
     Dosage: 40 MG
  13. SPIRONOLACTONE [Concomitant]
     Dosage: 12.5 MG

REACTIONS (9)
  - Death [Fatal]
  - Acute myocardial infarction [Unknown]
  - Acute myocardial infarction [Unknown]
  - Gastrointestinal haemorrhage [Recovered/Resolved]
  - Renal failure acute [Unknown]
  - Vomiting [Unknown]
  - Diarrhoea [Unknown]
  - Dizziness [Unknown]
  - Hypotension [Unknown]
